FAERS Safety Report 6768454-3 (Version None)
Quarter: 2010Q2

REPORT INFORMATION
  Report Type: 
  Country: None (occurrence: None)
  Receive Date: 20100610
  Receipt Date: 20100525
  Transmission Date: 20101027
  Serious: Yes (Hospitalization, Other)
  Sender: FDA-Public Use
  Company Number: GB-ACCORD-004120

PATIENT
  Age: 37 Year
  Sex: Male

DRUGS (4)
  1. MYCOPHENOLATE MOFETIL [Suspect]
     Indication: RENAL TRANSPLANT
     Dosage: 500.00-MG-2.00 PER-1.0DAYS
  2. TACROLIMUS [Suspect]
     Indication: RENAL TRANSPLANT
     Dates: start: 20060101, end: 20080101
  3. PREDNISOLONE [Suspect]
     Indication: RENAL TRANSPLANT
     Dosage: INTRAVENOUS
     Route: 042
  4. BASILIXIMAB (BASILIXIMAB) [Concomitant]

REACTIONS (13)
  - ARTHRALGIA [None]
  - BLOOD CREATINE PHOSPHOKINASE INCREASED [None]
  - BLOOD LACTATE DEHYDROGENASE INCREASED [None]
  - BURNING SENSATION [None]
  - COMPLICATIONS OF TRANSPLANTED KIDNEY [None]
  - DISEASE RECURRENCE [None]
  - HAEMODIALYSIS [None]
  - HAEMOGLOBIN DECREASED [None]
  - HAEMOLYTIC URAEMIC SYNDROME [None]
  - KIDNEY FIBROSIS [None]
  - RENAL GRAFT LOSS [None]
  - RENAL TRANSPLANT [None]
  - RENAL TUBULAR ATROPHY [None]
